FAERS Safety Report 18384500 (Version 1)
Quarter: 2020Q4

REPORT INFORMATION
  Report Type: Spontaneous
  Country: US (occurrence: US)
  Receive Date: 20201014
  Receipt Date: 20201014
  Transmission Date: 20210114
  Serious: No
  Sender: FDA-Public Use
  Company Number: US-KALEO, INC.-2020KL000069

PATIENT
  Age: 56 Year
  Sex: Female

DRUGS (1)
  1. AUVI-Q [Suspect]
     Active Substance: EPINEPHRINE
     Indication: ANAPHYLACTIC REACTION
     Dates: start: 20200529, end: 20200529

REACTIONS (5)
  - Injection site haemorrhage [Unknown]
  - Pallor [Unknown]
  - Drug ineffective [Not Recovered/Not Resolved]
  - Heart rate increased [Unknown]
  - Nausea [Unknown]

NARRATIVE: CASE EVENT DATE: 20200529
